FAERS Safety Report 21121045 (Version 2)
Quarter: 2022Q3

REPORT INFORMATION
  Report Type: Spontaneous
  Country: US (occurrence: US)
  Receive Date: 20220722
  Receipt Date: 20220921
  Transmission Date: 20221027
  Serious: No
  Sender: FDA-Public Use
  Company Number: US-BRISTOL-MYERS SQUIBB COMPANY-2022-078659

PATIENT
  Age: 69 Year
  Sex: Female

DRUGS (2)
  1. REVLIMID [Suspect]
     Active Substance: LENALIDOMIDE
     Indication: Plasma cell myeloma
     Dosage: FREQUENCY :  1-21, FOLLOWED BY 7 DAYS REST THEN REPEAT
     Route: 048
     Dates: start: 20220627
  2. REVLIMID [Suspect]
     Active Substance: LENALIDOMIDE
     Dosage: FREQ:  EVERY DAY ON DAYS 1-21, REST 7 DAYS, THEN REPEAT
     Route: 048
     Dates: start: 20220627

REACTIONS (3)
  - Blister [Unknown]
  - Peripheral swelling [Unknown]
  - Skin exfoliation [Unknown]
